FAERS Safety Report 7546990-X (Version None)
Quarter: 2011Q2

REPORT INFORMATION
  Report Type: 
  Country: None (occurrence: None)
  Receive Date: 20110614
  Receipt Date: 20110609
  Transmission Date: 20111010
  Serious: Yes (Hospitalization, Other)
  Sender: FDA-Public Use
  Company Number: GXKR2011DE01964

PATIENT
  Sex: Male

DRUGS (2)
  1. IBUPROFEN [Concomitant]
     Route: 048
  2. AMOXICILLIN [Suspect]
     Dosage: 1000 MG, TID
     Route: 048

REACTIONS (3)
  - PANCREATITIS ACUTE [None]
  - HYPERHIDROSIS [None]
  - GENERAL PHYSICAL HEALTH DETERIORATION [None]
